FAERS Safety Report 18077786 (Version 2)
Quarter: 2020Q3

REPORT INFORMATION
  Report Type: Report from Study
  Country: US (occurrence: US)
  Receive Date: 20200727
  Receipt Date: 20200825
  Transmission Date: 20201103
  Serious: Yes (Hospitalization, Other)
  Sender: FDA-Public Use
  Company Number: US-ACTELION-A-NJ2020-207283

PATIENT
  Age: 1 Year
  Sex: Male

DRUGS (5)
  1. DOCUSATE [Concomitant]
     Active Substance: DOCUSATE
     Dosage: 50 MG, BID
     Dates: start: 20200318
  2. SILDENAFIL. [Concomitant]
     Active Substance: SILDENAFIL
     Dosage: 9 MG, TID
     Dates: start: 20200318
  3. FUROSEMIDE. [Concomitant]
     Active Substance: FUROSEMIDE
     Dosage: 10 MG, TID
     Dates: start: 20200318
  4. TRACLEER [Suspect]
     Active Substance: BOSENTAN
     Indication: PRODUCT USED FOR UNKNOWN INDICATION
     Dosage: 14 MG, BID
     Route: 048
     Dates: start: 20200316, end: 20200801
  5. FAMOTIDINE. [Concomitant]
     Active Substance: FAMOTIDINE
     Dosage: 12 MG, BID
     Dates: start: 20200527

REACTIONS (4)
  - COVID-19 [Unknown]
  - Alanine aminotransferase increased [Recovering/Resolving]
  - Aspartate aminotransferase increased [Recovering/Resolving]
  - Alpha-1 antitrypsin deficiency [Unknown]

NARRATIVE: CASE EVENT DATE: 20200729
